FAERS Safety Report 7411896-3 (Version None)
Quarter: 2011Q2

REPORT INFORMATION
  Report Type: 
  Country: None (occurrence: None)
  Receive Date: 20110413
  Receipt Date: 20110401
  Transmission Date: 20111010
  Serious: Yes (Other)
  Sender: FDA-Public Use
  Company Number: US-JNJFOC-20110404018

PATIENT
  Sex: Female

DRUGS (2)
  1. BENADRYL ALLERGY DYE-FREE SOFT GEL [Suspect]
     Indication: PRODUCT USED FOR UNKNOWN INDICATION
     Route: 048
  2. BENADRYL ALLERGY DYE-FREE SOFT GEL [Suspect]
     Route: 048

REACTIONS (2)
  - HALLUCINATION [None]
  - SLEEP TALKING [None]
